FAERS Safety Report 11126546 (Version 1)
Quarter: 2015Q2

REPORT INFORMATION
  Report Type: Spontaneous
  Country: FR (occurrence: FR)
  Receive Date: 20150520
  Receipt Date: 20150520
  Transmission Date: 20150821
  Serious: Yes (Congenital Anomaly)
  Sender: FDA-Public Use
  Company Number: FR-JNJFOC-20150511068

PATIENT
  Age: 0 Year
  Sex: Female
  Weight: 2.17 kg

DRUGS (3)
  1. IMUREL [Suspect]
     Active Substance: AZATHIOPRINE SODIUM
     Indication: COLITIS ULCERATIVE
     Dosage: MOTHER^S DOSING
     Route: 064
     Dates: start: 20140621, end: 20150207
  2. FIVASA [Suspect]
     Active Substance: MESALAMINE
     Indication: COLITIS ULCERATIVE
     Dosage: MOTHER^S DOSING
     Route: 064
     Dates: start: 20140621, end: 20150207
  3. REMICADE [Suspect]
     Active Substance: INFLIXIMAB
     Indication: COLITIS ULCERATIVE
     Dosage: MOTHER^S DOSING
     Route: 064
     Dates: start: 20140621, end: 20141218

REACTIONS (3)
  - Foetal exposure during pregnancy [Recovered/Resolved]
  - Coarctation of the aorta [Recovered/Resolved with Sequelae]
  - Premature baby [Not Recovered/Not Resolved]

NARRATIVE: CASE EVENT DATE: 20140621
